FAERS Safety Report 6694208-2 (Version None)
Quarter: 2010Q2

REPORT INFORMATION
  Report Type: 
  Country: None (occurrence: None)
  Receive Date: 20100423
  Receipt Date: 20100413
  Transmission Date: 20101027
  Serious: Yes (Hospitalization)
  Sender: FDA-Public Use
  Company Number: US-JNJCH-2009031670

PATIENT
  Age: 8 Month
  Weight: 8 kg

DRUGS (2)
  1. ASPIRIN [Suspect]
     Indication: UPPER RESPIRATORY TRACT INFECTION
     Dosage: TEXT:0.06 GM/KG DAILY FOR THREE DAYS
     Route: 048
  2. SODIUM SALICYLATE ECT [Suspect]
     Indication: UPPER RESPIRATORY TRACT INFECTION
     Dosage: TEXT:75 MG/KG DAILY FOR THREE DAYS
     Route: 065

REACTIONS (2)
  - THERAPEUTIC AGENT TOXICITY [None]
  - WRONG DRUG ADMINISTERED [None]
